FAERS Safety Report 9517145 (Version 1)
Quarter: 2013Q3

REPORT INFORMATION
  Report Type: Spontaneous
  Country: US (occurrence: US)
  Receive Date: 20130911
  Receipt Date: 20130911
  Transmission Date: 20140515
  Serious: No
  Sender: FDA-Public Use
  Company Number: US-PFIZER INC-2013258040

PATIENT
  Age: 12 Week
  Sex: Male
  Weight: 9.98 kg

DRUGS (2)
  1. MOTRIN IB [Suspect]
     Indication: PYREXIA
     Dosage: 5 ML, TWICE A DAY
     Route: 048
     Dates: start: 20130718, end: 20130719
  2. TYLENOL INFANTS DROPS [Concomitant]
     Dosage: UNK

REACTIONS (2)
  - Incorrect dose administered [Unknown]
  - Vomiting [Recovered/Resolved]
